FAERS Safety Report 16337043 (Version 1)
Quarter: 2019Q2

REPORT INFORMATION
  Report Type: Report from Study
  Country: CN (occurrence: CN)
  Receive Date: 20190521
  Receipt Date: 20190521
  Transmission Date: 20190711
  Serious: Yes (Other)
  Sender: FDA-Public Use
  Company Number: CN-ROCHE-2316061

PATIENT

DRUGS (2)
  1. BEVACIZUMAB. [Suspect]
     Active Substance: BEVACIZUMAB
     Indication: LUNG ADENOCARCINOMA
     Dosage: DAY 1
     Route: 065
  2. PACLITAXEL ALBUMIN [Suspect]
     Active Substance: PACLITAXEL
     Indication: LUNG ADENOCARCINOMA
     Dosage: DAY 2 AND DAY 9
     Route: 065

REACTIONS (16)
  - Rash [Unknown]
  - Alopecia [Unknown]
  - Proteinuria [Unknown]
  - Platelet count decreased [Unknown]
  - Neutrophil count decreased [Unknown]
  - Haemorrhage [Unknown]
  - Diarrhoea [Unknown]
  - Asthenia [Unknown]
  - Nausea [Unknown]
  - Anaemia [Unknown]
  - Myalgia [Unknown]
  - Hypertension [Unknown]
  - Vomiting [Unknown]
  - Gastrointestinal disorder [Unknown]
  - Bone marrow failure [Unknown]
  - Neurotoxicity [Unknown]
